FAERS Safety Report 15423158 (Version 1)
Quarter: 2018Q4

REPORT INFORMATION
  Report Type: Other
  Country: TW (occurrence: TW)
  Receive Date: 20180925
  Receipt Date: 20180925
  Transmission Date: 20190204
  Serious: Yes (Hospitalization)
  Sender: FDA-Public Use
  Company Number: TW-GUARDIAN DRUG COMPANY-2055307

PATIENT
  Age: 62 Year
  Sex: Male

DRUGS (1)
  1. IBUPROFEN ORAL SUSPENSION USP, 100 MG/5 ML (OTC) [Suspect]
     Active Substance: IBUPROFEN
     Indication: ANALGESIC THERAPY
     Route: 030

REACTIONS (1)
  - Necrotising fasciitis [Recovering/Resolving]
